FAERS Safety Report 5820547-0 (Version None)
Quarter: 2008Q3

REPORT INFORMATION
  Report Type: 
  Country: None (occurrence: None)
  Receive Date: 20080724
  Receipt Date: 20071015
  Transmission Date: 20090109
  Serious: No
  Sender: FDA-Public Use
  Company Number: A0687731A

PATIENT
  Sex: Male

DRUGS (6)
  1. AVANDIA [Suspect]
     Indication: DRUG USE FOR UNKNOWN INDICATION
     Dates: end: 20070101
  2. COLCHICINE [Concomitant]
  3. PLAVIX [Concomitant]
  4. INDOMETHACIN [Concomitant]
  5. AMBIEN [Concomitant]
  6. ALLOPURINOL [Concomitant]

REACTIONS (1)
  - CARDIAC DISORDER [None]
